FAERS Safety Report 14223356 (Version 3)
Quarter: 2018Q2

REPORT INFORMATION
  Report Type: Report from Study
  Country: US (occurrence: US)
  Receive Date: 20171124
  Receipt Date: 20180502
  Transmission Date: 20180711
  Serious: Yes (Other)
  Sender: FDA-Public Use
  Company Number: US-ALEXION PHARMACEUTICALS INC.-A201710345

PATIENT
  Sex: Female

DRUGS (3)
  1. SOLIRIS [Suspect]
     Active Substance: ECULIZUMAB
     Indication: PAROXYSMAL NOCTURNAL HAEMOGLOBINURIA
     Dosage: 900 MG, Q2W
     Route: 042
  2. SOLIRIS [Suspect]
     Active Substance: ECULIZUMAB
     Dosage: 900 MG, QW
     Route: 065
  3. SOLIRIS [Suspect]
     Active Substance: ECULIZUMAB
     Dosage: 1200 MG, Q2W
     Route: 042

REACTIONS (6)
  - Incorrect dose administered [Unknown]
  - Mastitis [Recovering/Resolving]
  - Exposure during pregnancy [Unknown]
  - Fatigue [Recovering/Resolving]
  - Inappropriate schedule of drug administration [Not Recovered/Not Resolved]
  - Nausea [Unknown]
